FAERS Safety Report 4560113-0 (Version None)
Quarter: 2005Q1

REPORT INFORMATION
  Report Type: 
  Country: None (occurrence: None)
  Receive Date: 20050125
  Receipt Date: 20050118
  Transmission Date: 20050727
  Serious: Yes (Other)
  Sender: FDA-Public Use
  Company Number: IT-BRISTOL-MYERS SQUIBB COMPANY-12828794

PATIENT
  Age: 56 Year
  Sex: Male

DRUGS (5)
  1. STAVUDINE [Suspect]
     Indication: HIV INFECTION
     Dates: start: 19970101, end: 20040101
  2. DIDANOSINE [Suspect]
     Indication: HIV INFECTION
     Dates: start: 19970101, end: 20040101
  3. EFAVIRENZ [Suspect]
     Indication: HIV INFECTION
     Dates: start: 20010101, end: 20030501
  4. ATAZANAVIR [Suspect]
     Indication: HIV INFECTION
     Dates: start: 20030501
  5. INDINAVIR [Suspect]
     Indication: HIV INFECTION
     Dates: start: 19970101, end: 20010101

REACTIONS (10)
  - ATHEROSCLEROSIS [None]
  - BLOOD GLUCOSE INCREASED [None]
  - CAROTID ARTERY DISEASE [None]
  - HAEMATOMA [None]
  - HYPERLIPIDAEMIA [None]
  - HYPERTENSION [None]
  - LIPOATROPHY [None]
  - NECROSIS OF ARTERY [None]
  - PNEUMONIA PNEUMOCOCCAL [None]
  - VASCULAR PSEUDOANEURYSM [None]
